FAERS Safety Report 8212180-0 (Version None)
Quarter: 2012Q1

REPORT INFORMATION
  Report Type: 
  Country: None (occurrence: None)
  Receive Date: 20120315
  Receipt Date: 20120302
  Transmission Date: 20120608
  Serious: Yes (Hospitalization)
  Sender: FDA-Public Use
  Company Number: US-ROCHE-1045861

PATIENT
  Sex: Male

DRUGS (12)
  1. RANIBIZUMAB [Suspect]
     Indication: DIABETIC RETINAL OEDEMA
     Route: 050
     Dates: start: 20080317
  2. ALTACE [Concomitant]
     Dates: start: 20070101
  3. AMARYL [Concomitant]
     Dates: start: 20070101
  4. SYNTHROID [Concomitant]
     Dates: start: 20070101
  5. RANIBIZUMAB [Suspect]
     Route: 050
     Dates: start: 20100330
  6. HUMALOG [Concomitant]
     Dates: start: 20070101
  7. CYMBALTA [Concomitant]
     Dates: start: 20060101
  8. LANTUS [Concomitant]
     Dates: start: 20060101
  9. LIPITOR [Concomitant]
     Dates: start: 20050101
  10. COUMADIN [Concomitant]
     Dates: start: 20080101
  11. METFORMIN HCL [Concomitant]
     Dates: start: 20040101
  12. TOPROL-XL [Concomitant]
     Dates: start: 20080101

REACTIONS (1)
  - PNEUMONIA [None]
